FAERS Safety Report 25606252 (Version 1)
Quarter: 2025Q3

REPORT INFORMATION
  Report Type: Spontaneous
  Country: EU (occurrence: EU)
  Receive Date: 20250725
  Receipt Date: 20250725
  Transmission Date: 20251020
  Serious: Yes (Life-Threatening, Other)
  Sender: PFIZER
  Company Number: EU-PFIZER INC-PV202500088906

PATIENT
  Age: 82 Year

DRUGS (6)
  1. AMPICILLIN SODIUM\SULBACTAM SODIUM [Suspect]
     Active Substance: AMPICILLIN SODIUM\SULBACTAM SODIUM
     Indication: Pulmonary infarction
  2. AMPICILLIN SODIUM\SULBACTAM SODIUM [Suspect]
     Active Substance: AMPICILLIN SODIUM\SULBACTAM SODIUM
     Indication: Pneumonia
  3. MEROPENEM [Suspect]
     Active Substance: MEROPENEM
     Indication: Pulmonary infarction
  4. MEROPENEM [Suspect]
     Active Substance: MEROPENEM
     Indication: Pneumonia
  5. CLARITHROMYCIN [Suspect]
     Active Substance: CLARITHROMYCIN
     Indication: Pneumonia
  6. CLARITHROMYCIN [Suspect]
     Active Substance: CLARITHROMYCIN
     Indication: Pulmonary infarction

REACTIONS (1)
  - Drug ineffective [Unknown]
